FAERS Safety Report 5921422-3 (Version None)
Quarter: 2008Q4

REPORT INFORMATION
  Report Type: 
  Country: None (occurrence: None)
  Receive Date: 20081014
  Receipt Date: 20080929
  Transmission Date: 20090506
  Serious: Yes (Death, Hospitalization)
  Sender: FDA-Public Use
  Company Number: 197141

PATIENT
  Age: 40 Year
  Sex: Female

DRUGS (4)
  1. AVONEX [Suspect]
     Indication: MULTIPLE SCLEROSIS
     Dosage: 30 UG;QW;IM, 30 UG;QW;IM
     Route: 030
     Dates: start: 20020315, end: 20031001
  2. AVONEX [Suspect]
     Indication: MULTIPLE SCLEROSIS
     Dosage: 30 UG;QW;IM, 30 UG;QW;IM
     Route: 030
     Dates: start: 20031001
  3. CON MEDS [Concomitant]
  4. PREV MEDS [Concomitant]

REACTIONS (3)
  - CARCINOID TUMOUR OF THE GASTROINTESTINAL TRACT [None]
  - METASTASES TO LIVER [None]
  - SMALL INTESTINAL OBSTRUCTION [None]
